FAERS Safety Report 5148798-1 (Version None)
Quarter: 2006Q4

REPORT INFORMATION
  Report Type: 
  Country: None (occurrence: None)
  Receive Date: 20061107
  Receipt Date: 20061025
  Transmission Date: 20070319
  Serious: Yes (Hospitalization, Other)
  Sender: FDA-Public Use
  Company Number: 2006RL000384

PATIENT
  Age: 68 Year
  Sex: Female

DRUGS (2)
  1. OMACOR [Suspect]
     Indication: DRUG USE FOR UNKNOWN INDICATION
     Dosage: 1 GM TID PO
     Route: 048
  2. AMICAR [Suspect]
     Indication: DRUG USE FOR UNKNOWN INDICATION
     Dosage: 1 GM TID
     Dates: start: 20061012, end: 20061012

REACTIONS (5)
  - ANGINA PECTORIS [None]
  - DRUG DISPENSING ERROR [None]
  - MEDICATION ERROR [None]
  - MYOCARDIAL INFARCTION [None]
  - WRONG DRUG ADMINISTERED [None]
